FAERS Safety Report 7472400-7 (Version None)
Quarter: 2011Q2

REPORT INFORMATION
  Report Type: 
  Country: None (occurrence: None)
  Receive Date: 20110511
  Receipt Date: 20110427
  Transmission Date: 20111010
  Serious: Yes (Disabling)
  Sender: FDA-Public Use
  Company Number: PHHY2011FR36907

PATIENT
  Sex: Female

DRUGS (4)
  1. TAMOXIFEN CITRATE [Suspect]
     Indication: BREAST CANCER
     Dosage: UNK
     Dates: start: 20090601, end: 20091101
  2. ZOMETA [Suspect]
     Indication: METASTASES TO BONE
     Dosage: UNK
     Dates: start: 20090601, end: 20100308
  3. PACLITAXEL [Suspect]
     Indication: BREAST CANCER
     Dosage: 122 MG, UNK
     Dates: start: 20091101
  4. AVASTIN [Suspect]
     Indication: BREAST CANCER
     Dosage: UNK
     Dates: start: 20091101, end: 20100601

REACTIONS (4)
  - TOOTH AVULSION [None]
  - EXPOSED BONE IN JAW [None]
  - OSTEONECROSIS OF JAW [None]
  - IMPAIRED HEALING [None]
